FAERS Safety Report 4999716-8 (Version None)
Quarter: 2006Q2

REPORT INFORMATION
  Report Type: 
  Country: None (occurrence: None)
  Receive Date: 20060509
  Receipt Date: 20060426
  Transmission Date: 20061013
  Serious: Yes (Other)
  Sender: FDA-Public Use
  Company Number: 200612740BWH

PATIENT
  Age: 77 Year
  Sex: Male
  Weight: 64.8644 kg

DRUGS (1)
  1. SORAFENIB [Suspect]
     Indication: METASTATIC RENAL CELL CARCINOMA
     Dosage: 400 MG, BID, ORAL
     Route: 048
     Dates: start: 20050601, end: 20060331

REACTIONS (2)
  - BLISTER [None]
  - GANGRENE [None]
